FAERS Safety Report 11724798 (Version 1)
Quarter: 2015Q4

REPORT INFORMATION
  Report Type: Spontaneous
  Country: US (occurrence: US)
  Receive Date: 20151111
  Receipt Date: 20151111
  Transmission Date: 20160304
  Serious: No
  Sender: FDA-Public Use
  Company Number: US-UCBSA-2015006163

PATIENT
  Sex: Female

DRUGS (1)
  1. VIMPAT [Suspect]
     Active Substance: LACOSAMIDE
     Indication: PRODUCT USED FOR UNKNOWN INDICATION
     Dosage: 200MG MORNING, 100MG AFTERNOON AND 200 MG BEDTIME.

REACTIONS (5)
  - Dry mouth [Unknown]
  - Overdose [Unknown]
  - Gingival discolouration [Unknown]
  - Off label use [Unknown]
  - Nausea [Unknown]
